FAERS Safety Report 9012696 (Version 1)
Quarter: 2013Q1

REPORT INFORMATION
  Report Type: Spontaneous
  Country: US (occurrence: US)
  Receive Date: 20130114
  Receipt Date: 20130114
  Transmission Date: 20140127
  Serious: Yes (Other)
  Sender: FDA-Public Use
  Company Number: US-ROCHE-1177760

PATIENT
  Sex: 0

DRUGS (3)
  1. AVASTIN [Suspect]
     Indication: MACULAR DEGENERATION
     Route: 050
  2. AVASTIN [Suspect]
     Indication: OFF LABEL USE
  3. LUCENTIS [Suspect]
     Indication: PRODUCT USED FOR UNKNOWN INDICATION
     Route: 065

REACTIONS (18)
  - Blindness [Unknown]
  - Feeling abnormal [Unknown]
  - Nausea [Unknown]
  - Confusional state [Unknown]
  - Eye discharge [Unknown]
  - Lacrimal disorder [Unknown]
  - Eye infection [Unknown]
  - Eye disorder [Unknown]
  - Retinal vascular thrombosis [Unknown]
  - Thrombocytopenia [Unknown]
  - Intermittent claudication [Unknown]
  - Eye inflammation [Unknown]
  - Eye haemorrhage [Unknown]
  - Fatigue [Unknown]
  - Sleep disorder [Unknown]
  - Gait disturbance [Unknown]
  - Impaired healing [Unknown]
  - Contusion [Unknown]
